FAERS Safety Report 9928686 (Version 1)
Quarter: 2014Q1

REPORT INFORMATION
  Report Type: Spontaneous
  Country: US (occurrence: None)
  Receive Date: 20140225
  Receipt Date: 20140225
  Transmission Date: 20141002
  Serious: Yes (Other)
  Sender: FDA-Public Use
  Company Number: 2014AP001403

PATIENT
  Age: 91 Year
  Sex: Female

DRUGS (6)
  1. LEVOFLOXACIN ( LEVOFLOXACIN) [Suspect]
     Indication: UPPER RESPIRATORY TRACT INFECTION
     Route: 048
     Dates: start: 20131128, end: 20131212
  2. LEVEMIR [Suspect]
     Indication: DIABETES MELLITUS
     Route: 058
     Dates: start: 20120101, end: 20131213
  3. HUMULIN R [Suspect]
     Indication: DIABETES MELLITUS
     Route: 058
     Dates: start: 20120101, end: 20131213
  4. ACEDIUR/00729601/(CAPOZIDE) [Concomitant]
  5. CREON ( PANCREATIN) [Concomitant]
  6. MUCOSOLVAN ( AMBROXOL HYDROCHLORIDE) [Concomitant]

REACTIONS (1)
  - Hypoglycaemic coma [None]
